FAERS Safety Report 7797561-1 (Version None)
Quarter: 2011Q4

REPORT INFORMATION
  Report Type: 
  Country: None (occurrence: None)
  Receive Date: 20111004
  Receipt Date: 20111004
  Transmission Date: 20120403
  Serious: Yes (Hospitalization)
  Sender: FDA-Public Use
  Company Number: None

PATIENT
  Age: 48 Year
  Sex: Male

DRUGS (1)
  1. ENBREL [Suspect]
     Dosage: 50MG QW SUB-Q
     Route: 058
     Dates: start: 20110718, end: 20110809

REACTIONS (2)
  - THROMBOSIS [None]
  - PULMONARY THROMBOSIS [None]
